FAERS Safety Report 8898626 (Version 5)
Quarter: 2014Q3

REPORT INFORMATION
  Report Type: Spontaneous
  Country: US (occurrence: US)
  Receive Date: 20121108
  Receipt Date: 20140828
  Transmission Date: 20150326
  Serious: Yes (Hospitalization, Other)
  Sender: FDA-Public Use
  Company Number: US-009507513-1211USA003735

PATIENT
  Sex: Female
  Weight: 63.49 kg

DRUGS (1)
  1. NUVARING [Suspect]
     Active Substance: ETHINYL ESTRADIOL\ETONOGESTREL
     Indication: CONTRACEPTION
     Dosage: UNK
     Dates: start: 20110501, end: 20111031

REACTIONS (9)
  - Pulmonary embolism [Unknown]
  - Hyperlipidaemia [Unknown]
  - Rectal ulcer [Unknown]
  - Gastrointestinal ulcer haemorrhage [Unknown]
  - Migraine [Unknown]
  - Depression [Unknown]
  - Pain [Unknown]
  - Galactorrhoea [Unknown]
  - Thyroid disorder [Unknown]

NARRATIVE: CASE EVENT DATE: 20111130
